FAERS Safety Report 7064313-X (Version None)
Quarter: 2010Q4

REPORT INFORMATION
  Report Type: 
  Country: None (occurrence: None)
  Receive Date: 20101027
  Receipt Date: 20101021
  Transmission Date: 20110411
  Serious: Yes (Death, Life-Threatening)
  Sender: FDA-Public Use
  Company Number: AT-ROXANE LABORATORIES, INC.-2010-RO-01410RO

PATIENT
  Age: 41 Year
  Sex: Female
  Weight: 128 kg

DRUGS (3)
  1. TOPIRAMATE [Suspect]
     Route: 048
  2. CITALOPRAM HYDROBROMIDE [Suspect]
     Route: 048
  3. FLUNITRAZEPAM [Suspect]
     Route: 048

REACTIONS (3)
  - DRUG TOXICITY [None]
  - RESPIRATORY DEPRESSION [None]
  - SHOCK [None]
